FAERS Safety Report 14285383 (Version 1)
Quarter: 2017Q4

REPORT INFORMATION
  Report Type: Spontaneous
  Country: US (occurrence: US)
  Receive Date: 20171214
  Receipt Date: 20171214
  Transmission Date: 20180321
  Serious: Yes (Other)
  Sender: FDA-Public Use
  Company Number: None

PATIENT
  Age: 54 Year
  Sex: Male
  Weight: 77 kg

DRUGS (1)
  1. KEYTRUDA [Suspect]
     Active Substance: PEMBROLIZUMAB
     Indication: METASTATIC MALIGNANT MELANOMA
     Dosage: OTHER FREQUENCY:EVERY 21 DAYS;?
     Route: 042
     Dates: start: 20170612, end: 20171113

REACTIONS (4)
  - Iris adhesions [None]
  - Iridocyclitis [None]
  - Visual impairment [None]
  - Cataract cortical [None]

NARRATIVE: CASE EVENT DATE: 20171207
